FAERS Safety Report 12094800 (Version 1)
Quarter: 2016Q1

REPORT INFORMATION
  Report Type: Other
  Country: CH (occurrence: CH)
  Receive Date: 20160219
  Receipt Date: 20160219
  Transmission Date: 20160526
  Serious: Yes (Hospitalization)
  Sender: FDA-Public Use
  Company Number: CH-DEP_13634_2016

PATIENT
  Age: 74 Year
  Sex: Female

DRUGS (5)
  1. ZALDIAR [Suspect]
     Active Substance: ACETAMINOPHEN\TRAMADOL HYDROCHLORIDE
     Indication: PAIN
     Dosage: 1 DF, 2/DAY
  2. OXYCODON (OXYCODONE HYDROCHLORIDE ) [Suspect]
     Active Substance: OXYCODONE HYDROCHLORIDE
     Indication: PAIN
     Route: 048
  3. DUROGESIC (FENTANYL) [Suspect]
     Active Substance: FENTANYL
     Indication: PAIN
     Route: 062
  4. FENTANYL (FENTANYL) [Suspect]
     Active Substance: FENTANYL
     Indication: PAIN
     Dosage: AS NEEDED
  5. PALEXIA [Suspect]
     Active Substance: TAPENTADOL HYDROCHLORIDE
     Indication: PAIN
     Route: 048

REACTIONS (3)
  - Spinal column stenosis [Unknown]
  - Radicular syndrome [Unknown]
  - Pain [Unknown]
